FAERS Safety Report 14262482 (Version 1)
Quarter: 2017Q4

REPORT INFORMATION
  Report Type: Report from Study
  Country: US (occurrence: US)
  Receive Date: 20171208
  Receipt Date: 20171208
  Transmission Date: 20180321
  Serious: No
  Sender: FDA-Public Use
  Company Number: US-KYOWAKIRIN-2017BKK002477

PATIENT

DRUGS (2)
  1. GRANISETRON [Suspect]
     Active Substance: GRANISETRON
     Indication: RADIOTHERAPY TO HEAD AND NECK
  2. GRANISETRON [Suspect]
     Active Substance: GRANISETRON
     Indication: CHEMOTHERAPY
     Dosage: 1 PATCH EVERY 7 DAYS
     Route: 065
     Dates: start: 20170808

REACTIONS (3)
  - Inappropriate schedule of drug administration [Unknown]
  - Product adhesion issue [Unknown]
  - Intentional product misuse [Unknown]

NARRATIVE: CASE EVENT DATE: 201708
